FAERS Safety Report 15715582 (Version 2)
Quarter: 2019Q1

REPORT INFORMATION
  Report Type: Spontaneous
  Country: US (occurrence: US)
  Receive Date: 20181212
  Receipt Date: 20190228
  Transmission Date: 20190417
  Serious: Yes (Hospitalization)
  Sender: FDA-Public Use
  Company Number: US-009507513-1812USA004713

PATIENT
  Age: 15 Year
  Sex: Female

DRUGS (4)
  1. NEXPLANON [Suspect]
     Active Substance: ETONOGESTREL
     Indication: HORMONE THERAPY
  2. NEXPLANON [Suspect]
     Active Substance: ETONOGESTREL
     Indication: ABDOMINAL PAIN
  3. ADDERALL [Concomitant]
     Active Substance: AMPHETAMINE ASPARTATE\AMPHETAMINE SULFATE\DEXTROAMPHETAMINE SACCHARATE\DEXTROAMPHETAMINE SULFATE
  4. NEXPLANON [Suspect]
     Active Substance: ETONOGESTREL
     Indication: CYST
     Dosage: THREE YEAR INSERT/ INJECTION IN LEFT UPPER ARM
     Route: 059
     Dates: start: 20181011

REACTIONS (4)
  - Gait disturbance [Recovering/Resolving]
  - Sensory loss [Recovering/Resolving]
  - Product use in unapproved indication [Unknown]
  - Hypoaesthesia [Recovering/Resolving]

NARRATIVE: CASE EVENT DATE: 20181011
